FAERS Safety Report 9373413 (Version 1)
Quarter: 2013Q2

REPORT INFORMATION
  Report Type: Spontaneous
  Country: KR (occurrence: KR)
  Receive Date: 20130627
  Receipt Date: 20130627
  Transmission Date: 20140414
  Serious: Yes (Death, Hospitalization)
  Sender: FDA-Public Use
  Company Number: KR-ACTELION-A-CH2013-84640

PATIENT
  Age: 80 Year
  Sex: Male
  Weight: 64 kg

DRUGS (2)
  1. TRACLEER [Suspect]
     Indication: PULMONARY ARTERIAL HYPERTENSION
     Dosage: 62.5 MG, BID
     Route: 048
  2. VIAGRA [Concomitant]
     Indication: PULMONARY ARTERIAL HYPERTENSION

REACTIONS (4)
  - Sputum increased [Fatal]
  - Respiratory distress [Fatal]
  - Condition aggravated [Fatal]
  - Nasopharyngitis [Fatal]
